FAERS Safety Report 23063013 (Version 1)
Quarter: 2023Q4

REPORT INFORMATION
  Report Type: Spontaneous
  Country: US (occurrence: None)
  Receive Date: 20231012
  Receipt Date: 20231012
  Transmission Date: 20240109
  Serious: Yes (Death)
  Sender: FDA-Public Use
  Company Number: None

PATIENT
  Sex: Male

DRUGS (2)
  1. MYCOPHENOLIC ACID [Suspect]
     Active Substance: MYCOPHENOLIC ACID
     Indication: Immunodeficiency
     Route: 048
     Dates: start: 20171005, end: 20231006
  2. CYCLOSPORINE MODIFIED [Concomitant]
     Active Substance: CYCLOSPORINE

REACTIONS (1)
  - Death [None]
